FAERS Safety Report 10018247 (Version 1)
Quarter: 2014Q1

REPORT INFORMATION
  Report Type: Spontaneous
  Country: US (occurrence: US)
  Receive Date: 20140318
  Receipt Date: 20140318
  Transmission Date: 20141002
  Serious: No
  Sender: FDA-Public Use
  Company Number: US-BRISTOL-MYERS SQUIBB COMPANY-19575943

PATIENT
  Age: 48 Year
  Sex: Male

DRUGS (4)
  1. ERBITUX [Suspect]
     Indication: COLORECTAL CANCER
     Dates: start: 20131009
  2. 5FU [Concomitant]
  3. CAMPTOSAR [Concomitant]
  4. LEUCOVORIN [Concomitant]

REACTIONS (1)
  - Pruritus [Recovered/Resolved]
